FAERS Safety Report 9762806 (Version 2)
Quarter: 2014Q2

REPORT INFORMATION
  Report Type: Spontaneous
  Country: US (occurrence: US)
  Receive Date: 20131216
  Receipt Date: 20140605
  Transmission Date: 20141212
  Serious: No
  Sender: FDA-Public Use
  Company Number: US-PFIZER INC-2013352709

PATIENT
  Age: 69 Year
  Sex: Female

DRUGS (2)
  1. BOSULIF [Suspect]
     Indication: CHRONIC MYELOID LEUKAEMIA
     Dosage: 100 MG, 1X/DAY (1 TAB QD)
     Dates: start: 20131204
  2. BOSULIF [Suspect]
     Dosage: 500 MG, DAILY
     Dates: start: 20131207

REACTIONS (1)
  - Diarrhoea [Unknown]
